FAERS Safety Report 8049461-X (Version None)
Quarter: 2012Q1

REPORT INFORMATION
  Report Type: 
  Country: None (occurrence: None)
  Receive Date: 20120117
  Receipt Date: 20120113
  Transmission Date: 20120608
  Serious: Yes (Other)
  Sender: FDA-Public Use
  Company Number: DK-PFIZER INC-2012011474

PATIENT
  Age: 65 Year
  Sex: Male

DRUGS (1)
  1. VARENICLINE TARTRATE [Suspect]
     Indication: SMOKING CESSATION THERAPY
     Dosage: DOSE ACCORDING TO RECOMENDATIONS
     Route: 048
     Dates: start: 20090901

REACTIONS (3)
  - DYSPNOEA [None]
  - ATRIAL FLUTTER [None]
  - DIZZINESS [None]
